FAERS Safety Report 10427127 (Version 1)
Quarter: 2014Q3

REPORT INFORMATION
  Report Type: Spontaneous
  Country: US (occurrence: None)
  Receive Date: 20140902
  Receipt Date: 20140902
  Transmission Date: 20150326
  Serious: Yes (Other)
  Sender: FDA-Public Use
  Company Number: None

PATIENT
  Age: 49 Year
  Sex: Male
  Weight: 83.92 kg

DRUGS (1)
  1. SODIUM CHLORIDE 0.9% [Suspect]
     Active Substance: SODIUM CHLORIDE
     Indication: SKIN CYST EXCISION
     Dates: start: 20140728, end: 20140728

REACTIONS (3)
  - Phlebitis [None]
  - Product quality issue [None]
  - Hypersensitivity [None]

NARRATIVE: CASE EVENT DATE: 20140728
